FAERS Safety Report 6119358 (Version 11)
Quarter: 2012Q4

REPORT INFORMATION
  Report Type: 
  Country: US (occurrence: US)
  Receive Date: 20060831
  Receipt Date: 20121109
  Transmission Date: 20130627
  Serious: Yes (Hospitalization, Other)
  Sender: FDA-Public Use
  Company Number: PHEH2006US10940

PATIENT
  Age: 64 None
  Sex: Male
  Weight: 68.03 kg

DRUGS (59)
  1. AREDIA [Suspect]
     Dosage: 90 mg,Q3mos
     Route: 042
     Dates: start: 20020614, end: 20021217
  2. AREDIA [Suspect]
     Dosage: 30 mg, ONCE/SINGLE
     Dates: start: 20030320, end: 20030320
  3. AREDIA [Suspect]
     Dosage: 90 mg, QMO
     Dates: start: 20030727, end: 20040428
  4. AREDIA [Suspect]
     Dosage: 90 mg, Q2MO
     Dates: start: 20040614, end: 20051109
  5. AREDIA [Suspect]
     Dosage: 90 mg, q3-4mos
     Dates: start: 20060215
  6. THALIDOMIDE [Suspect]
     Dates: start: 200206
  7. ANTIHYPERTENSIVE DRUGS [Concomitant]
  8. AVASTIN [Concomitant]
     Dosage: 700 mg, Q3W
     Route: 042
  9. TAXOTERE [Concomitant]
  10. CARBOPLATIN [Concomitant]
  11. GEMZAR [Concomitant]
  12. KETOCONAZOLE [Concomitant]
  13. CYTOXAN [Concomitant]
  14. INTRONA [Concomitant]
  15. PROSCAR [Concomitant]
  16. COUMADIN [Concomitant]
  17. TESTOSTERONE [Concomitant]
  18. LIPITOR [Concomitant]
     Dosage: 40 mg, QD
  19. NEXIUM [Concomitant]
  20. DECADRON [Concomitant]
     Indication: PREMEDICATION
     Dosage: 4 mg, UNK
     Route: 042
     Dates: start: 20020614
  21. HYDROCORTISONE [Concomitant]
     Dates: start: 20030513, end: 20040217
  22. GABAPENTIN [Concomitant]
  23. NEUMEGA [Concomitant]
  24. REVLIMID [Concomitant]
  25. DILAUDID [Concomitant]
  26. DARVOCET-N [Concomitant]
  27. ROCEPHIN [Concomitant]
  28. CIPRO [Concomitant]
  29. NORCO [Concomitant]
  30. ENTEX [Concomitant]
  31. ANDROGEL [Concomitant]
  32. DIOVAN HCT [Concomitant]
  33. VITAMIN E [Concomitant]
  34. DIOVAN ^CIBA-GEIGY^ [Concomitant]
  35. KEFLEX                                  /UNK/ [Concomitant]
  36. LASIX [Concomitant]
  37. VITAMIN B6 [Concomitant]
  38. ASA [Concomitant]
  39. CELEBREX [Concomitant]
  40. CURCUMEN [Concomitant]
  41. ESTINYL [Concomitant]
  42. ROCALTROL [Concomitant]
  43. LEUKINE [Concomitant]
  44. ALDACTONE [Concomitant]
  45. LUPRON [Concomitant]
  46. ZYPREXA [Concomitant]
  47. VANCOMYCIN [Concomitant]
  48. SANDOSTATIN [Concomitant]
  49. CHLORHEXIDINE [Concomitant]
  50. TARCEVA [Concomitant]
  51. EPOGEN [Concomitant]
  52. EMCYT [Concomitant]
  53. AVODART [Concomitant]
  54. PROVIGIL [Concomitant]
  55. ARANESP [Concomitant]
  56. LOVAZA [Concomitant]
  57. METFORMIN [Concomitant]
  58. NIASPAN [Concomitant]
  59. ASPIRIN ^BAYER^ [Concomitant]

REACTIONS (95)
  - Pancytopenia [Unknown]
  - Hiatus hernia [Unknown]
  - Nephrolithiasis [Unknown]
  - Hepatic cyst [Unknown]
  - Tendonitis [Unknown]
  - Muscle spasms [Unknown]
  - Transient ischaemic attack [Unknown]
  - Muscle strain [Unknown]
  - Haemangioma of bone [Unknown]
  - Dysarthria [Unknown]
  - Neutropenia [Unknown]
  - Amnesia [Unknown]
  - Bowel movement irregularity [Unknown]
  - Leukopenia [Unknown]
  - Thrombocytopenia [Unknown]
  - Tooth fracture [Unknown]
  - Dermal cyst [Unknown]
  - Somnolence [Unknown]
  - Diarrhoea [Unknown]
  - Osteopenia [Unknown]
  - Aphasia [Unknown]
  - Hypertension [Unknown]
  - Hyperlipidaemia [Unknown]
  - Abdominal pain [Unknown]
  - Urinary hesitation [Unknown]
  - Weight decreased [Unknown]
  - Hypogeusia [Unknown]
  - Loss of consciousness [Unknown]
  - Mucosal inflammation [Unknown]
  - Mental impairment [Unknown]
  - Cerebral infarction [Unknown]
  - Cerebral atrophy [Unknown]
  - Gliosis [Unknown]
  - Malignant neoplasm progression [Unknown]
  - Enterocolitis [Unknown]
  - Pancreatic cyst [Unknown]
  - Chest pain [Unknown]
  - Gastric ulcer [Unknown]
  - Impaired healing [Unknown]
  - Joint swelling [Unknown]
  - Otitis media acute [Unknown]
  - Cerumen impaction [Unknown]
  - Hypoacusis [Unknown]
  - Dyspnoea [Unknown]
  - Productive cough [Unknown]
  - Bronchitis [Unknown]
  - Kidney fibrosis [Unknown]
  - Benign prostatic hyperplasia [Unknown]
  - Cellulitis [Unknown]
  - Diverticulum [Unknown]
  - Osteonecrosis of jaw [Not Recovered/Not Resolved]
  - Pain in jaw [Not Recovered/Not Resolved]
  - Loose tooth [Not Recovered/Not Resolved]
  - Oral infection [Not Recovered/Not Resolved]
  - Gingival inflammation [Not Recovered/Not Resolved]
  - Gingival bleeding [Not Recovered/Not Resolved]
  - Hypophagia [Not Recovered/Not Resolved]
  - Trismus [Not Recovered/Not Resolved]
  - Bone disorder [Not Recovered/Not Resolved]
  - Primary sequestrum [Unknown]
  - Bone loss [Unknown]
  - Osteomyelitis [Unknown]
  - Periodontal disease [Unknown]
  - Gingival infection [Unknown]
  - Lymphadenopathy [Unknown]
  - Neuropathy peripheral [Recovering/Resolving]
  - Hypoaesthesia [Recovering/Resolving]
  - Spinal osteoarthritis [Unknown]
  - Aortic arteriosclerosis [Unknown]
  - Renal cyst [Unknown]
  - Injury [Unknown]
  - Disability [Unknown]
  - Pain [Unknown]
  - Anxiety [Unknown]
  - Anhedonia [Unknown]
  - Toothache [Unknown]
  - Oral pain [Unknown]
  - Gingival pain [Unknown]
  - Gingival recession [Unknown]
  - Parotid gland enlargement [Unknown]
  - Salivary gland pain [Unknown]
  - Anaemia [Unknown]
  - Sinusitis [Unknown]
  - Cholelithiasis [Unknown]
  - Pulmonary congestion [Unknown]
  - Back pain [Unknown]
  - Abdominal discomfort [Unknown]
  - Decreased appetite [Unknown]
  - Nasal odour [Unknown]
  - Heat exhaustion [Unknown]
  - Cerebrovascular accident [Unknown]
  - Encephalomalacia [Unknown]
  - Spondylopathy traumatic [Unknown]
  - Pleural effusion [Unknown]
  - Sinus disorder [Unknown]
